FAERS Safety Report 15980291 (Version 6)
Quarter: 2019Q3

REPORT INFORMATION
  Report Type: Report from Study
  Country: CO (occurrence: CO)
  Receive Date: 20190219
  Receipt Date: 20190814
  Transmission Date: 20191004
  Serious: Yes (Hospitalization)
  Sender: FDA-Public Use
  Company Number: PHHY2018CO146878

PATIENT
  Sex: Male
  Weight: 67 kg

DRUGS (7)
  1. REVOLADE [Suspect]
     Active Substance: ELTROMBOPAG
     Dosage: 50 MG, QD
     Route: 048
  2. JADENU [Suspect]
     Active Substance: DEFERASIROX
     Indication: THALASSAEMIA
     Dosage: 180 MG, QD
     Route: 048
     Dates: start: 20180618
  3. JADENU [Suspect]
     Active Substance: DEFERASIROX
     Dosage: 180 MG, UNK
     Route: 048
  4. JADENU [Suspect]
     Active Substance: DEFERASIROX
     Dosage: 360 UNK, UNK
     Route: 048
  5. REVOLADE [Suspect]
     Active Substance: ELTROMBOPAG
     Indication: APLASTIC ANAEMIA
     Dosage: 50 MG, QD
     Route: 048
     Dates: start: 20180921
  6. REVOLADE [Suspect]
     Active Substance: ELTROMBOPAG
     Dosage: 100 MG, QD
     Route: 048
     Dates: start: 2018, end: 201812
  7. REVOLADE [Suspect]
     Active Substance: ELTROMBOPAG
     Dosage: 100 MG, QD
     Route: 048

REACTIONS (14)
  - Skin discolouration [Unknown]
  - Asthenia [Unknown]
  - Hypersensitivity [Unknown]
  - Urinary tract infection [Unknown]
  - Disease recurrence [Unknown]
  - Platelet count decreased [Unknown]
  - Troponin increased [Unknown]
  - Haemorrhage [Unknown]
  - Peripheral coldness [Unknown]
  - Weight decreased [Recovering/Resolving]
  - Aplastic anaemia [Unknown]
  - Pyrexia [Unknown]
  - Haematocoele [Unknown]
  - White blood cell count decreased [Unknown]
